FAERS Safety Report 9953634 (Version 2)
Quarter: 2014Q1

REPORT INFORMATION
  Report Type: Report from Study
  Country: FR (occurrence: FR)
  Receive Date: 20140304
  Receipt Date: 20140328
  Transmission Date: 20141002
  Serious: Yes (Death, Other)
  Sender: FDA-Public Use
  Company Number: FR-BRISTOL-MYERS SQUIBB COMPANY-20340006

PATIENT
  Age: 58 Year
  Sex: Male

DRUGS (3)
  1. CETUXIMAB [Suspect]
     Indication: GASTROINTESTINAL CARCINOMA
     Dosage: RECENT DOSE ON:11MAR2013
     Route: 042
     Dates: start: 20130121, end: 20130311
  2. CARBOPLATIN INJECTION [Suspect]
     Indication: GASTROINTESTINAL CARCINOMA
     Dosage: 4 PER CYCLE
     Route: 042
     Dates: start: 20130128, end: 20130314
  3. FLUOROURACIL [Suspect]
     Indication: GASTROINTESTINAL CARCINOMA
     Dosage: 4 PER CYCLE
     Route: 042
     Dates: start: 20130128, end: 20130314

REACTIONS (3)
  - Septic shock [Fatal]
  - Bone marrow failure [Recovered/Resolved]
  - Radiation skin injury [Not Recovered/Not Resolved]
